FAERS Safety Report 8500242-X (Version None)
Quarter: 2012Q3

REPORT INFORMATION
  Report Type: 
  Country: None (occurrence: None)
  Receive Date: 20120710
  Receipt Date: 20120705
  Transmission Date: 20120928
  Serious: Yes (Death, Other)
  Sender: FDA-Public Use
  Company Number: PHHY2012CH057991

PATIENT
  Age: 91 Year
  Sex: Male

DRUGS (6)
  1. VENTOLIN [Concomitant]
     Dosage: 1 DF, PER DAY
     Route: 002
  2. DIGOXIN [Suspect]
     Dosage: 0.125 MG, DAILY
     Route: 048
     Dates: end: 20120119
  3. TORASEMIDE [Concomitant]
     Dosage: 10 MG
     Route: 048
  4. NITRO-DUR 10 [Concomitant]
     Dosage: 1 DF, PER DAY
     Route: 061
  5. DOSPIR [Concomitant]
     Dosage: 1 DF PER DAY
     Route: 002
  6. PLAVIX [Concomitant]
     Dosage: 75 MG, DAILY
     Route: 048

REACTIONS (24)
  - RENAL FAILURE ACUTE [None]
  - BRONCHOPNEUMONIA [None]
  - DEHYDRATION [None]
  - GENERAL PHYSICAL HEALTH DETERIORATION [None]
  - DEATH [None]
  - BLOOD GLUCOSE DECREASED [None]
  - HYPOXIA [None]
  - POLYURIA [None]
  - TOXICITY TO VARIOUS AGENTS [None]
  - HAEMATOMA [None]
  - HYPOVENTILATION [None]
  - TACHYPNOEA [None]
  - DISORIENTATION [None]
  - INFLAMMATORY MARKER INCREASED [None]
  - CONFUSIONAL STATE [None]
  - DECREASED APPETITE [None]
  - DEMENTIA [None]
  - BLOOD PRESSURE DIASTOLIC DECREASED [None]
  - OXYGEN SATURATION DECREASED [None]
  - HYPERKALAEMIA [None]
  - CARDIOACTIVE DRUG LEVEL INCREASED [None]
  - PROCEDURAL COMPLICATION [None]
  - WEIGHT DECREASED [None]
  - ASPIRATION BRONCHIAL [None]
